FAERS Safety Report 8887077 (Version 2)
Quarter: 2013Q4

REPORT INFORMATION
  Report Type: Spontaneous
  Country: US (occurrence: US)
  Receive Date: 20121105
  Receipt Date: 20131108
  Transmission Date: 20140711
  Serious: Yes (Other)
  Sender: FDA-Public Use
  Company Number: US-US-EMD SERONO, INC.-7171009

PATIENT
  Sex: Female
  Weight: 35 kg

DRUGS (3)
  1. SAIZEN [(SOMATROPIN (RDNA ORIGIN) FOR INJECTION)] [Suspect]
     Indication: DWARFISM
     Route: 058
     Dates: start: 20101208
  2. SAIZEN [(SOMATROPIN (RDNA ORIGIN) FOR INJECTION)] [Suspect]
     Indication: BODY HEIGHT BELOW NORMAL
     Route: 058
  3. SAIZEN [(SOMATROPIN (RDNA ORIGIN) FOR INJECTION)] [Suspect]
     Indication: GROWTH HORMONE DEFICIENCY
     Route: 058

REACTIONS (3)
  - Benign ovarian tumour [Unknown]
  - Ovarian cyst torsion [Unknown]
  - Benign female reproductive tract neoplasm [Unknown]
